FAERS Safety Report 18376574 (Version 1)
Quarter: 2020Q4

REPORT INFORMATION
  Report Type: Spontaneous
  Country: US (occurrence: US)
  Receive Date: 20201012
  Receipt Date: 20201012
  Transmission Date: 20210114
  Serious: Yes (Hospitalization)
  Sender: FDA-Public Use
  Company Number: None

PATIENT
  Age: 2 Year
  Sex: Male

DRUGS (2)
  1. SILDENAFIL. [Suspect]
     Active Substance: SILDENAFIL
     Dosage: ?          OTHER FREQUENCY:EVERY 8 HOURS;OTHER ROUTE:PER J TUBE?
  2. SILDENAFIL. [Concomitant]
     Active Substance: SILDENAFIL
     Dates: start: 20190131

REACTIONS (2)
  - Product substitution issue [None]
  - Respiratory disorder [None]
